FAERS Safety Report 24702058 (Version 1)
Quarter: 2024Q4

REPORT INFORMATION
  Report Type: Spontaneous
  Country: US (occurrence: US)
  Receive Date: 20241205
  Receipt Date: 20241205
  Transmission Date: 20250115
  Serious: Yes (Other)
  Sender: TEVA
  Company Number: US-TEVA-VS-3270004

PATIENT
  Age: 50 Year
  Sex: Male

DRUGS (3)
  1. CABERGOLINE [Suspect]
     Active Substance: CABERGOLINE
     Indication: Prolactin-producing pituitary tumour
     Route: 065
  2. LEVOTHYROXINE [Concomitant]
     Active Substance: LEVOTHYROXINE
     Indication: Prolactin-producing pituitary tumour
     Route: 065
  3. BROMOCRIPTINE [Suspect]
     Active Substance: BROMOCRIPTINE
     Indication: Prolactin-producing pituitary tumour
     Dosage: FOR 3MONTHS
     Route: 065

REACTIONS (1)
  - Chiasma syndrome [Unknown]
